FAERS Safety Report 10479806 (Version 1)
Quarter: 2014Q3

REPORT INFORMATION
  Report Type: Report from Study
  Country: US (occurrence: US)
  Receive Date: 20140928
  Receipt Date: 20140928
  Transmission Date: 20150326
  Serious: Yes (Hospitalization, Other)
  Sender: FDA-Public Use
  Company Number: US-ABBVIE-14K-163-1287591-00

PATIENT
  Age: 37 Year
  Sex: Male

DRUGS (5)
  1. HUMIRA [Suspect]
     Active Substance: ADALIMUMAB
  2. VITAMIN D2 [Concomitant]
     Active Substance: ERGOCALCIFEROL
     Indication: PRODUCT USED FOR UNKNOWN INDICATION
  3. VITAMIN B12 [Concomitant]
     Active Substance: CYANOCOBALAMIN
     Indication: PRODUCT USED FOR UNKNOWN INDICATION
     Route: 045
  4. HUMIRA [Suspect]
     Active Substance: ADALIMUMAB
     Dates: end: 2012
  5. HUMIRA [Suspect]
     Active Substance: ADALIMUMAB
     Indication: CROHN^S DISEASE
     Dates: start: 2010

REACTIONS (12)
  - Injection related reaction [Not Recovered/Not Resolved]
  - Device related infection [Recovering/Resolving]
  - Weight decreased [Unknown]
  - Crohn^s disease [Unknown]
  - Device issue [Unknown]
  - Intestinal obstruction [Recovered/Resolved]
  - Hodgkin^s disease [Recovered/Resolved]
  - Crohn^s disease [Recovering/Resolving]
  - Nausea [Recovering/Resolving]
  - Injection site pain [Not Recovered/Not Resolved]
  - Pain [Recovering/Resolving]
  - Nausea [Recovering/Resolving]

NARRATIVE: CASE EVENT DATE: 2010
